FAERS Safety Report 4814155-8 (Version None)
Quarter: 2005Q4

REPORT INFORMATION
  Report Type: 
  Country: None (occurrence: None)
  Receive Date: 20051028
  Receipt Date: 20050711
  Transmission Date: 20060501
  Serious: No
  Sender: FDA-Public Use
  Company Number: US-GLAXOSMITHKLINE-A0565765A

PATIENT
  Sex: Female

DRUGS (10)
  1. ADVAIR DISKUS 100/50 [Suspect]
     Indication: CHRONIC OBSTRUCTIVE PULMONARY DISEASE
     Dosage: 1PUFF TWICE PER DAY
     Route: 055
     Dates: start: 20040101
  2. SPIRIVA [Concomitant]
  3. ALBUTEROL [Concomitant]
  4. NORVASC [Concomitant]
  5. PRAVACHOL [Concomitant]
  6. ARIMIDEX [Concomitant]
  7. PEPCID [Concomitant]
  8. LASIX [Concomitant]
  9. TRANSENE [Concomitant]
  10. FLONASE [Concomitant]

REACTIONS (4)
  - DRUG INEFFECTIVE [None]
  - PALPITATIONS [None]
  - PRODUCTIVE COUGH [None]
  - RASH [None]
